FAERS Safety Report 18313762 (Version 1)
Quarter: 2020Q3

REPORT INFORMATION
  Report Type: Spontaneous
  Country: CN (occurrence: CN)
  Receive Date: 20200925
  Receipt Date: 20200925
  Transmission Date: 20201103
  Serious: Yes (Hospitalization)
  Sender: FDA-Public Use
  Company Number: CN-JNJFOC-20200936851

PATIENT
  Age: 81 Year
  Sex: Male
  Weight: 82 kg

DRUGS (1)
  1. XARELTO [Suspect]
     Active Substance: RIVAROXABAN
     Indication: PULMONARY EMBOLISM
     Dosage: 20 MG, QD
     Route: 048
     Dates: start: 20200709, end: 20200825

REACTIONS (5)
  - Cough [Unknown]
  - Coagulation time prolonged [Recovered/Resolved]
  - Tachypnoea [Unknown]
  - Sputum increased [Unknown]
  - Off label use [Unknown]

NARRATIVE: CASE EVENT DATE: 20200709
